FAERS Safety Report 15739942 (Version 1)
Quarter: 2018Q4

REPORT INFORMATION
  Report Type: Spontaneous
  Country: US (occurrence: US)
  Receive Date: 20181204
  Receipt Date: 20181204
  Transmission Date: 20190205
  Serious: No
  Sender: FDA-Public Use
  Company Number: None

PATIENT
  Age: 62 Year
  Weight: 92.08 kg

DRUGS (2)
  1. TENOFOVIR DISOPROSINIL [Suspect]
     Active Substance: TENOFOVIR
     Indication: CHRONIC HEPATITIS B
     Route: 048
     Dates: start: 20181113
  2. ENTECAVIR. [Suspect]
     Active Substance: ENTECAVIR

REACTIONS (1)
  - Nausea [None]

NARRATIVE: CASE EVENT DATE: 20181113
